FAERS Safety Report 23512469 (Version 4)
Quarter: 2025Q3

REPORT INFORMATION
  Report Type: Spontaneous
  Country: EU (occurrence: EU)
  Receive Date: 20240212
  Receipt Date: 20250919
  Transmission Date: 20251020
  Serious: Yes (Hospitalization)
  Sender: MYLAN
  Company Number: EU-MYLANLABS-2024M1013571

PATIENT
  Age: 37 Year
  Sex: Female

DRUGS (16)
  1. LYRICA [Suspect]
     Active Substance: PREGABALIN
     Indication: Sedative therapy
     Dosage: 300 MILLIGRAM, BID (MORNINING AND EVENING)
     Dates: start: 2019
  2. LYRICA [Suspect]
     Active Substance: PREGABALIN
     Dosage: 150 MILLIGRAM, QD (DOSE REDUCED TO 300MG MORNING AND 150MG)
  3. LYRICA [Suspect]
     Active Substance: PREGABALIN
     Dates: start: 20231128, end: 20231128
  4. BROMAZEPAM [Suspect]
     Active Substance: BROMAZEPAM
     Indication: Product used for unknown indication
  5. BROMAZEPAM [Suspect]
     Active Substance: BROMAZEPAM
     Dosage: 6 MILLIGRAM, QD (IMV IN COCAINE RECOVERY)
     Dates: start: 2019
  6. ZOLPIDEM [Suspect]
     Active Substance: ZOLPIDEM TARTRATE
     Indication: Product used for unknown indication
     Dosage: 10 MILLIGRAM, PM  (IMV IN COCAINE RECOVERY AT BEDTIME)
     Dates: start: 2019
  7. ZOLPIDEM [Suspect]
     Active Substance: ZOLPIDEM TARTRATE
     Dosage: 10 MILLIGRAM, PM
     Dates: start: 2019
  8. TRAMADOL [Suspect]
     Active Substance: TRAMADOL
     Indication: Product used for unknown indication
  9. BROMAZEPAM [Suspect]
     Active Substance: BROMAZEPAM
     Indication: Product used for unknown indication
     Dosage: 6 MILLIGRAM, BID (MORNING AND EVENING AND IMV ON THE WAY DOWN FROM COCAINE)
     Dates: start: 2019
  10. HEROIN [Suspect]
     Active Substance: DIAMORPHINE
     Indication: Product used for unknown indication
  11. KETAMINE [Suspect]
     Active Substance: KETAMINE
     Indication: Product used for unknown indication
  12. HEROIN [Suspect]
     Active Substance: DIAMORPHINE
     Indication: Product used for unknown indication
  13. METHADONE [Suspect]
     Active Substance: METHADONE HYDROCHLORIDE
     Indication: Product used for unknown indication
     Dates: start: 20231128, end: 20231128
  14. COCAINE [Concomitant]
     Active Substance: COCAINE
     Indication: Product used for unknown indication
     Dosage: 2 GRAM, QD (NASAL ROUTE IN A FESTIVE CONTEXT)
     Dates: start: 2002
  15. COCAINE [Concomitant]
     Active Substance: COCAINE
     Dosage: 2 GRAM, QD (REGULAR INTAKE SMOKED IN A CRACK PIPE CONSUMPTION)
     Dates: start: 2019
  16. COCAINE [Concomitant]
     Active Substance: COCAINE

REACTIONS (4)
  - Coma [Recovered/Resolved]
  - Pneumonia aspiration [Recovering/Resolving]
  - Drug use disorder [Not Recovered/Not Resolved]
  - Substance use disorder [Not Recovered/Not Resolved]

NARRATIVE: CASE EVENT DATE: 20190101
